FAERS Safety Report 10158230 (Version 3)
Quarter: 2014Q2

REPORT INFORMATION
  Report Type: Spontaneous
  Country: US (occurrence: US)
  Receive Date: 20140507
  Receipt Date: 20140613
  Transmission Date: 20141212
  Serious: Yes (Other)
  Sender: FDA-Public Use
  Company Number: US-TEVA-479963USA

PATIENT
  Sex: Female

DRUGS (1)
  1. PARAGARD 380A [Suspect]
     Indication: CONTRACEPTION
     Route: 015
     Dates: start: 2009, end: 20140328

REACTIONS (2)
  - Device breakage [Not Recovered/Not Resolved]
  - Embedded device [Not Recovered/Not Resolved]
